FAERS Safety Report 10497109 (Version 1)
Quarter: 2014Q4

REPORT INFORMATION
  Report Type: Report from Study
  Country: AU (occurrence: AU)
  Receive Date: 20141006
  Receipt Date: 20141006
  Transmission Date: 20150528
  Serious: Yes (Other)
  Sender: FDA-Public Use
  Company Number: PHHY2014AU125613

PATIENT
  Sex: Female

DRUGS (4)
  1. CLOPINE [Suspect]
     Active Substance: CLOZAPINE
     Indication: PRODUCT USED FOR UNKNOWN INDICATION
     Dosage: UNK
     Route: 065
  2. CLOZARIL [Suspect]
     Active Substance: CLOZAPINE
     Indication: PRODUCT USED FOR UNKNOWN INDICATION
     Dosage: 275 MG DAILY
     Route: 065
     Dates: start: 19970727, end: 2008
  3. SEROQUEL [Suspect]
     Active Substance: QUETIAPINE FUMARATE
     Indication: PRODUCT USED FOR UNKNOWN INDICATION
     Dosage: UNK
     Route: 065
  4. CLOZARIL [Interacting]
     Active Substance: CLOZAPINE
     Dosage: UNK
     Route: 065

REACTIONS (11)
  - Antipsychotic drug level decreased [Unknown]
  - Drug dependence [Unknown]
  - Sinusitis [Unknown]
  - Insomnia [Unknown]
  - Malaise [Unknown]
  - Drug interaction [Unknown]
  - Nasopharyngitis [Unknown]
  - Feeling abnormal [Unknown]
  - General physical health deterioration [Unknown]
  - Shock [Unknown]
  - Weight decreased [Unknown]
